FAERS Safety Report 13787810 (Version 1)
Quarter: 2017Q3

REPORT INFORMATION
  Report Type: Spontaneous
  Country: IN (occurrence: IN)
  Receive Date: 20170725
  Receipt Date: 20170725
  Transmission Date: 20171127
  Serious: No
  Sender: FDA-Public Use
  Company Number: IN-LUPIN PHARMACEUTICALS INC.-E2B_00006053

PATIENT
  Age: 82 Year
  Sex: Male

DRUGS (4)
  1. MAC RABONICK PLUS [Concomitant]
     Indication: FLATULENCE
     Dosage: 1 DF,BID,
     Route: 048
  2. PEGALUP ORAL SOLUT. 200 ML [Suspect]
     Active Substance: POLYETHYLENE GLYCOL 3350\POTASSIUM CHLORIDE\SODIUM BICARBONATE\SODIUM CHLORIDE
     Indication: CONSTIPATION
     Dosage: UNK UNK,UNK,UNKNOWN
     Route: 048
     Dates: start: 20160814
  3. MAC RABONICK PLUS [Concomitant]
     Indication: HYPERCHLORHYDRIA
  4. PANTOCID (PANTOPRAZOLE SODIUM SESQUIHYDRATE) [Concomitant]
     Active Substance: PANTOPRAZOLE SODIUM
     Indication: PRODUCT USED FOR UNKNOWN INDICATION
     Dosage: 1 DF,QD,
     Route: 048

REACTIONS (1)
  - Drug ineffective [Unknown]
